FAERS Safety Report 18645415 (Version 2)
Quarter: 2021Q1

REPORT INFORMATION
  Report Type: Spontaneous
  Country: US (occurrence: US)
  Receive Date: 20201222
  Receipt Date: 20210217
  Transmission Date: 20210419
  Serious: No
  Sender: FDA-Public Use
  Company Number: US-RECORDATI RARE DISEASES-2103289

PATIENT
  Age: 74 Year
  Sex: Female

DRUGS (4)
  1. LEVAQUIN [Concomitant]
     Active Substance: LEVOFLOXACIN
  2. CYSTADANE [Suspect]
     Active Substance: BETAINE
     Indication: CARDIAC DISORDER
     Dates: end: 2020
  3. CYSTADANE [Suspect]
     Active Substance: BETAINE
     Dates: start: 2020
  4. CYSTADANE [Suspect]
     Active Substance: BETAINE
     Indication: OFF LABEL USE
     Dates: end: 2020

REACTIONS (4)
  - Product use issue [Not Recovered/Not Resolved]
  - Cystitis [Recovered/Resolved]
  - Off label use [Not Recovered/Not Resolved]
  - Stress [Unknown]

NARRATIVE: CASE EVENT DATE: 202004
